FAERS Safety Report 17971870 (Version 2)
Quarter: 2020Q3

REPORT INFORMATION
  Report Type: Spontaneous
  Country: HN (occurrence: HN)
  Receive Date: 20200701
  Receipt Date: 20200716
  Transmission Date: 20201103
  Serious: Yes (Other)
  Sender: FDA-Public Use
  Company Number: NVSC2020HN180437

PATIENT
  Age: 31 Year
  Weight: 147 kg

DRUGS (2)
  1. METHOTREXATE. [Suspect]
     Active Substance: METHOTREXATE
     Indication: HIGH-GRADE B-CELL LYMPHOMA
     Dosage: 2 DF
     Route: 037
     Dates: start: 20190228, end: 20190429
  2. ZOLEDRONIC ACID [Suspect]
     Active Substance: ZOLEDRONIC ACID
     Indication: PRODUCT USED FOR UNKNOWN INDICATION
     Dosage: UNK UNK, QMO
     Route: 065

REACTIONS (13)
  - Globulins decreased [Unknown]
  - Scoliosis [Unknown]
  - Pyrexia [Recovered/Resolved]
  - Haemoglobin decreased [Unknown]
  - Weight decreased [Recovered/Resolved]
  - Osteopenia [Unknown]
  - High density lipoprotein abnormal [Unknown]
  - Lymphoma [Unknown]
  - Back pain [Recovered/Resolved]
  - Lipoprotein (a) decreased [Unknown]
  - Metastatic neoplasm [Unknown]
  - Lordosis [Unknown]
  - Haematocrit decreased [Unknown]

NARRATIVE: CASE EVENT DATE: 20200611
